FAERS Safety Report 22214655 (Version 1)
Quarter: 2023Q2

REPORT INFORMATION
  Report Type: Spontaneous
  Country: US (occurrence: US)
  Receive Date: 20230415
  Receipt Date: 20230415
  Transmission Date: 20230721
  Serious: Yes (Other)
  Sender: FDA-Public Use
  Company Number: US-CELLTRION INC.-2023US007709

PATIENT

DRUGS (1)
  1. INFLECTRA [Suspect]
     Active Substance: INFLIXIMAB-DYYB
     Indication: Crohn^s disease
     Dosage: 700MG EVERY 4 WEEKS BY INTRAVENOUS INFUSION
     Route: 042
     Dates: start: 20210209

REACTIONS (5)
  - Loss of consciousness [Unknown]
  - Vomiting projectile [Unknown]
  - Off label use [Unknown]
  - Overdose [Unknown]
  - Intentional dose omission [Unknown]

NARRATIVE: CASE EVENT DATE: 20230406
